FAERS Safety Report 4868054-6 (Version None)
Quarter: 2005Q4

REPORT INFORMATION
  Report Type: 
  Country: None (occurrence: None)
  Receive Date: 20051227
  Receipt Date: 20051227
  Transmission Date: 20060501
  Serious: No
  Sender: FDA-Public Use
  Company Number: None

PATIENT
  Age: 45 Year
  Sex: Female
  Weight: 55.3388 kg

DRUGS (1)
  1. OXYCODONE SR (IVAC) [Suspect]
     Indication: BACK PAIN
     Dosage: T 1,2

REACTIONS (1)
  - DRUG EFFECT DECREASED [None]
